FAERS Safety Report 6006794-6 (Version None)
Quarter: 2008Q4

REPORT INFORMATION
  Report Type: 
  Country: None (occurrence: None)
  Receive Date: 20081217
  Receipt Date: 20080724
  Transmission Date: 20090506
  Serious: No
  Sender: FDA-Public Use
  Company Number: US-ASTRAZENECA-2004UW01686

PATIENT
  Age: 65 Year
  Sex: Male
  Weight: 86.2 kg

DRUGS (4)
  1. CRESTOR [Suspect]
     Indication: BLOOD CHOLESTEROL INCREASED
     Route: 048
     Dates: start: 20040101
  2. LOVAZA [Concomitant]
     Dates: start: 20040101
  3. ASPIRIN [Concomitant]
  4. FLAXSEED [Concomitant]

REACTIONS (4)
  - ARTHRALGIA [None]
  - GAIT DISTURBANCE [None]
  - HIGH DENSITY LIPOPROTEIN DECREASED [None]
  - HYPOTENSION [None]
